FAERS Safety Report 6413485-6 (Version None)
Quarter: 2009Q4

REPORT INFORMATION
  Report Type: 
  Country: None (occurrence: None)
  Receive Date: 20091026
  Receipt Date: 20091012
  Transmission Date: 20100525
  Serious: Yes (Hospitalization)
  Sender: FDA-Public Use
  Company Number: US-AMGEN-QUU368549

PATIENT
  Sex: Female

DRUGS (6)
  1. NEULASTA [Suspect]
     Indication: CHEMOTHERAPY
     Route: 065
     Dates: start: 20090717
  2. NEUPOGEN [Suspect]
     Indication: CHEMOTHERAPY
  3. TAXOTERE [Concomitant]
  4. CARBOPLATIN [Concomitant]
  5. HERCEPTIN [Concomitant]
  6. KEPPRA [Concomitant]

REACTIONS (4)
  - BONE PAIN [None]
  - PYREXIA [None]
  - VISUAL IMPAIRMENT [None]
  - WHITE BLOOD CELL COUNT DECREASED [None]
